FAERS Safety Report 9036477 (Version 1)
Quarter: 2013Q1

REPORT INFORMATION
  Report Type: Spontaneous
  Country: US (occurrence: None)
  Receive Date: 20130117
  Receipt Date: 20130117
  Transmission Date: 20140127
  Serious: Yes (Hospitalization)
  Sender: FDA-Public Use
  Company Number: None

PATIENT
  Age: 77 Year
  Sex: Male
  Weight: 83.37 kg

DRUGS (31)
  1. BEVACIZUMAB [Suspect]
  2. ASPIRIN [Concomitant]
  3. COREG [Concomitant]
  4. ENSURE [Concomitant]
  5. GLIPIZIDE [Concomitant]
  6. LASIX [Concomitant]
  7. LEVOTHYROXINE SODIUM [Concomitant]
  8. LEXAPRO [Concomitant]
  9. LIPITOR [Concomitant]
  10. LISINOPRIL [Concomitant]
  11. LOFIBRA [Concomitant]
  12. METFORMIN HC1 [Concomitant]
  13. METOLAZONE [Concomitant]
  14. MULTIVITAMINS TABLET [Concomitant]
  15. NORVASC [Concomitant]
  16. PLAVIX [Concomitant]
  17. ROCALTROL [Concomitant]
  18. TRICOR [Concomitant]
  19. VITAMIN D CAPSULE [Concomitant]
  20. ZAROXOLYN [Concomitant]
  21. ASPIRIN [Concomitant]
  22. COREG TABLET [Concomitant]
  23. ENSURE LIQUID [Concomitant]
  24. GLIPIZIDE [Concomitant]
  25. LASIX [Concomitant]
  26. LEVOTHYROXINE SODIUM [Concomitant]
  27. LEXAPRO [Concomitant]
  28. LIPITOR [Concomitant]
  29. LISINOPRIL [Concomitant]
  30. LOFIBRA [Concomitant]
  31. METFORMIN HC1 [Concomitant]

REACTIONS (14)
  - Confusional state [None]
  - Abnormal behaviour [None]
  - Dizziness [None]
  - Encephalopathy [None]
  - Mental status changes [None]
  - Cerebrovascular accident [None]
  - Transient ischaemic attack [None]
  - Hypoxia [None]
  - Carotid artery stenosis [None]
  - Carotid artery occlusion [None]
  - Somnolence [None]
  - Treatment noncompliance [None]
  - Essential hypertension [None]
  - Diabetes mellitus [None]
